FAERS Safety Report 14386556 (Version 4)
Quarter: 2020Q1

REPORT INFORMATION
  Report Type: Spontaneous
  Country: US (occurrence: US)
  Receive Date: 20180115
  Receipt Date: 20200306
  Transmission Date: 20200409
  Serious: Yes (Other)
  Sender: FDA-Public Use
  Company Number: US-SA-2017SA150998

PATIENT
  Age: 55 Year
  Sex: Female
  Weight: 64 kg

DRUGS (6)
  1. CYTOXAN [Concomitant]
     Active Substance: CYCLOPHOSPHAMIDE
     Dosage: UNK
     Dates: start: 20090402, end: 20090402
  2. NEOSAR [Concomitant]
     Active Substance: CYCLOPHOSPHAMIDE
     Indication: BREAST CANCER FEMALE
  3. CYTOXAN [Concomitant]
     Active Substance: CYCLOPHOSPHAMIDE
     Indication: BREAST CANCER FEMALE
     Dosage: UNK
     Dates: start: 20081224, end: 20081224
  4. TAXOTERE [Suspect]
     Active Substance: DOCETAXEL
     Indication: BREAST CANCER FEMALE
     Dosage: 128 MG, Q3W
     Route: 042
     Dates: start: 20081124, end: 20081124
  5. TAXOTERE [Suspect]
     Active Substance: DOCETAXEL
     Dosage: 128 MG, Q3W
     Route: 042
     Dates: start: 20090402, end: 20090402
  6. DYAZIDE [Concomitant]
     Active Substance: HYDROCHLOROTHIAZIDE\TRIAMTERENE
     Dosage: UNK

REACTIONS (6)
  - Psychological trauma [Unknown]
  - Emotional distress [Unknown]
  - Anxiety [Unknown]
  - Impaired quality of life [Unknown]
  - Pain [Unknown]
  - Alopecia [Recovering/Resolving]

NARRATIVE: CASE EVENT DATE: 20090124
